FAERS Safety Report 16483906 (Version 1)
Quarter: 2019Q2

REPORT INFORMATION
  Report Type: Spontaneous
  Country: US (occurrence: US)
  Receive Date: 20190515
  Receipt Date: 20190515
  Transmission Date: 20190711
  Serious: Yes (Hospitalization)
  Sender: FDA-Public Use
  Company Number: None

PATIENT
  Age: 90 Year
  Sex: Male
  Weight: 89 kg

DRUGS (1)
  1. WARFARIN [Suspect]
     Active Substance: WARFARIN
     Indication: ATRIAL FIBRILLATION
     Route: 048

REACTIONS (4)
  - Malaise [None]
  - Atrial thrombosis [None]
  - Anticoagulation drug level below therapeutic [None]
  - Left ventricular dysfunction [None]

NARRATIVE: CASE EVENT DATE: 20181120
